FAERS Safety Report 6345077-1 (Version None)
Quarter: 2009Q3

REPORT INFORMATION
  Report Type: 
  Country: None (occurrence: None)
  Receive Date: 20090909
  Receipt Date: 20090827
  Transmission Date: 20100115
  Serious: Yes (Disabling)
  Sender: FDA-Public Use
  Company Number: GB-RANBAXY-2009RR-27436

PATIENT
  Age: 61 Year
  Sex: Female
  Weight: 55.5 kg

DRUGS (4)
  1. TOPIRAMATE [Suspect]
     Indication: MIGRAINE
     Dosage: 25 MG, UNK
     Route: 048
     Dates: start: 20080605, end: 20080914
  2. AMITRIPTYLINE [Concomitant]
     Indication: MIGRAINE
     Dosage: 25 MG, QD
     Route: 048
     Dates: start: 20041005
  3. SUMATRIPTAN SUCCINATE [Concomitant]
     Indication: MIGRAINE
     Dosage: 100 MG, PRN
     Route: 048
     Dates: start: 20020605
  4. TOLFENAMIC ACID [Concomitant]
     Indication: MIGRAINE
     Dosage: 200 MG, PRN
     Route: 048
     Dates: start: 20060830

REACTIONS (2)
  - DEPRESSION [None]
  - SUICIDAL IDEATION [None]
